FAERS Safety Report 8996037 (Version 1)
Quarter: 2013Q1

REPORT INFORMATION
  Report Type: Spontaneous
  Country: US (occurrence: US)
  Receive Date: 20130103
  Receipt Date: 20130103
  Transmission Date: 20140127
  Serious: No
  Sender: FDA-Public Use
  Company Number: US-ABBOTT-12P-163-0931475-00

PATIENT
  Age: 47 Year
  Sex: Female

DRUGS (3)
  1. SYNTHROID [Suspect]
     Indication: HYPOTHYROIDISM
     Dates: end: 20120426
  2. SYNTHROID [Suspect]
     Indication: HYPOTHYROIDISM
     Dates: end: 20120426
  3. TIROSINT [Suspect]
     Indication: HYPOTHYROIDISM
     Dates: start: 20120426

REACTIONS (2)
  - Sluggishness [Unknown]
  - Paraesthesia [Unknown]
